FAERS Safety Report 19405962 (Version 1)
Quarter: 2021Q2

REPORT INFORMATION
  Report Type: Spontaneous
  Country: DE (occurrence: DE)
  Receive Date: 20210611
  Receipt Date: 20210611
  Transmission Date: 20210717
  Serious: Yes (Hospitalization)
  Sender: FDA-Public Use
  Company Number: DE-TEVA-2021-DE-1920588

PATIENT
  Age: 53 Year
  Sex: Female
  Weight: 78 kg

DRUGS (9)
  1. RAMIPRIL. [Concomitant]
     Active Substance: RAMIPRIL
     Dosage: 5 MILLIGRAM DAILY;  1?0?1?0
     Route: 048
  2. KALIUMCHLORID [Concomitant]
     Active Substance: POTASSIUM CHLORIDE
     Dosage: 8 MMOL, 8X
     Route: 048
  3. CYCLOPHOSPHAMID [Suspect]
     Active Substance: CYCLOPHOSPHAMIDE
     Dosage: 900 MG, MOST RECENTLY ON 11022021
  4. MOXIFLOXACIN. [Suspect]
     Active Substance: MOXIFLOXACIN
     Dosage: SINCE 18022021
     Route: 048
     Dates: start: 20210218
  5. EPIRUBICIN [Suspect]
     Active Substance: EPIRUBICIN
     Dosage: 130 MG, LAST ON 11022021
  6. LONQUEX 6MG [Concomitant]
     Active Substance: LIPEGFILGRASTIM
     Dosage: 6 MG, LAST ON 13022021
     Route: 058
  7. PANTOPRAZOL [Concomitant]
     Active Substance: PANTOPRAZOLE SODIUM
     Dosage: 40 MILLIGRAM DAILY;  1?0?0?0
     Route: 048
  8. PREDNISOLON [Concomitant]
     Active Substance: PREDNISOLONE
     Dosage: .5 DOSAGE FORMS DAILY; 5 MG, 0.5?0?0?0
     Route: 048
  9. LEVOTHYROXIN?NATRIUM [Concomitant]
     Active Substance: LEVOTHYROXINE SODIUM
     Dosage: 50 MICROGRAM DAILY; 1?0?0?0
     Route: 048

REACTIONS (3)
  - Pyrexia [Recovering/Resolving]
  - Dizziness [Recovering/Resolving]
  - Pancytopenia [Recovering/Resolving]
